FAERS Safety Report 9447709 (Version 1)
Quarter: 2013Q3

REPORT INFORMATION
  Report Type: Spontaneous
  Country: US (occurrence: None)
  Receive Date: 20130807
  Receipt Date: 20130807
  Transmission Date: 20140515
  Serious: No
  Sender: FDA-Public Use
  Company Number: None

PATIENT
  Age: 27 Year
  Sex: Female
  Weight: 74.84 kg

DRUGS (1)
  1. FORTAMET [Suspect]
     Indication: POLYCYSTIC OVARIES
     Dosage: 500 MG 2 TABES BID PO
     Route: 048
     Dates: start: 20130729, end: 20130805

REACTIONS (5)
  - Diarrhoea [None]
  - Nausea [None]
  - Decreased appetite [None]
  - Pain [None]
  - Abdominal pain [None]
